FAERS Safety Report 9769192 (Version 1)
Quarter: 2013Q4

REPORT INFORMATION
  Report Type: Spontaneous
  Country: US (occurrence: US)
  Receive Date: 20131218
  Receipt Date: 20131218
  Transmission Date: 20140711
  Serious: No
  Sender: FDA-Public Use
  Company Number: US-009507513-1312USA006433

PATIENT
  Age: 20 Year
  Sex: Male

DRUGS (2)
  1. SAPHRIS [Suspect]
     Indication: MOOD ALTERED
     Dosage: 10 MG, QD
     Route: 060
     Dates: start: 201312
  2. PROZAC [Concomitant]

REACTIONS (2)
  - Insomnia [Unknown]
  - Inappropriate schedule of drug administration [Unknown]
